FAERS Safety Report 13619676 (Version 1)
Quarter: 2017Q2

REPORT INFORMATION
  Report Type: Spontaneous
  Country: US (occurrence: US)
  Receive Date: 20170606
  Receipt Date: 20170606
  Transmission Date: 20170830
  Serious: Yes (Hospitalization)
  Sender: FDA-Public Use
  Company Number: US-VIFOR (INTERNATIONAL) INC.-VIT-2016-08475

PATIENT
  Age: 87 Year
  Sex: Female
  Weight: 55.84 kg

DRUGS (16)
  1. VELTASSA [Suspect]
     Active Substance: PATIROMER
     Indication: HYPERKALAEMIA
     Route: 048
  2. COZAAR [Concomitant]
     Active Substance: LOSARTAN POTASSIUM
  3. MIRTAZAPINE. [Concomitant]
     Active Substance: MIRTAZAPINE
  4. ROBITUSSIN DM [Concomitant]
     Active Substance: DEXTROMETHORPHAN HYDROBROMIDE\GUAIFENESIN
  5. HECTOROL [Concomitant]
     Active Substance: DOXERCALCIFEROL
  6. AMBIEN [Concomitant]
     Active Substance: ZOLPIDEM TARTRATE
  7. CLONIDINE HYDROCHLORIDE. [Concomitant]
     Active Substance: CLONIDINE HYDROCHLORIDE
  8. CYANOCOBALAMIN. [Concomitant]
     Active Substance: CYANOCOBALAMIN
  9. CARDIZEM CD [Concomitant]
     Active Substance: DILTIAZEM HYDROCHLORIDE
  10. MIRALAX [Concomitant]
     Active Substance: POLYETHYLENE GLYCOL 3350
  11. CATAPRES [Concomitant]
     Active Substance: CLONIDINE HYDROCHLORIDE
  12. DULCOLAX NOS [Concomitant]
     Active Substance: BISACODYL OR DOCUSATE SODIUM
  13. SENSIPAR [Concomitant]
     Active Substance: CINACALCET HYDROCHLORIDE
  14. TYLENOL [Concomitant]
     Active Substance: ACETAMINOPHEN
  15. RENVELA [Concomitant]
     Active Substance: SEVELAMER CARBONATE
  16. ZOFRAN [Concomitant]
     Active Substance: ONDANSETRON HYDROCHLORIDE

REACTIONS (1)
  - Respiratory distress [Recovered/Resolved]

NARRATIVE: CASE EVENT DATE: 20161130
